FAERS Safety Report 12469245 (Version 2)
Quarter: 2016Q2

REPORT INFORMATION
  Report Type: Report from Study
  Country: ES (occurrence: ES)
  Receive Date: 20160615
  Receipt Date: 20160630
  Transmission Date: 20160815
  Serious: Yes (Hospitalization, Disabling)
  Sender: FDA-Public Use
  Company Number: ES-JNJFOC-20160607469

PATIENT
  Age: 61 Year
  Sex: Male

DRUGS (43)
  1. CARVEDILOL. [Concomitant]
     Active Substance: CARVEDILOL
     Indication: CARDIAC DISORDER
     Route: 048
     Dates: start: 201006, end: 20110307
  2. CILOSTAZOL. [Concomitant]
     Active Substance: CILOSTAZOL
     Indication: INTERMITTENT CLAUDICATION
     Route: 048
     Dates: start: 20110202
  3. OXYMESTERONE [Concomitant]
     Route: 047
     Dates: start: 20150815
  4. VILDAGLIPTIN [Concomitant]
     Active Substance: VILDAGLIPTIN
     Indication: HYPERGLYCAEMIA
     Route: 065
     Dates: start: 20150604
  5. CANAGLIFLOZIN [Suspect]
     Active Substance: CANAGLIFLOZIN
     Route: 048
  6. CARVEDILOL. [Concomitant]
     Active Substance: CARVEDILOL
     Indication: CARDIAC DISORDER
     Route: 048
     Dates: start: 20110307
  7. INSULIN GLARGINE [Concomitant]
     Active Substance: INSULIN GLARGINE
     Indication: HYPERGLYCAEMIA
     Dosage: 26 (UNITS UNSPECIFIED)
     Route: 065
     Dates: start: 20120403, end: 20150203
  8. INSULIN GLARGINE [Concomitant]
     Active Substance: INSULIN GLARGINE
     Indication: HYPERGLYCAEMIA
     Dosage: 22 (UNITS UNSPECIFIED)
     Route: 065
     Dates: start: 20150701, end: 20151215
  9. METFORMIN [Concomitant]
     Active Substance: METFORMIN HYDROCHLORIDE
     Indication: HYPERGLYCAEMIA
     Route: 065
     Dates: start: 20150604
  10. PARACETAMOL [Concomitant]
     Active Substance: ACETAMINOPHEN
     Indication: ADVERSE EVENT
     Route: 048
     Dates: start: 20111213
  11. PARACETAMOL [Concomitant]
     Active Substance: ACETAMINOPHEN
     Indication: ADVERSE EVENT
     Route: 048
     Dates: start: 20150606
  12. PARACETAMOL [Concomitant]
     Active Substance: ACETAMINOPHEN
     Indication: ADVERSE EVENT
     Route: 048
     Dates: start: 20130311
  13. PARACETAMOL [Concomitant]
     Active Substance: ACETAMINOPHEN
     Indication: INTERMITTENT CLAUDICATION
     Route: 048
     Dates: start: 20111213
  14. ENALAPRIL [Concomitant]
     Active Substance: ENALAPRIL
     Indication: HYPERTENSION
     Route: 048
     Dates: start: 20120521, end: 20120618
  15. CLOPIDOGREL [Concomitant]
     Active Substance: CLOPIDOGREL BISULFATE
     Route: 048
     Dates: start: 20150815
  16. INSULIN GLARGINE [Concomitant]
     Active Substance: INSULIN GLARGINE
     Indication: HYPERGLYCAEMIA
     Dosage: 22 (UNITS UNSPECIFIED)
     Route: 065
     Dates: start: 20130325, end: 20140102
  17. INSULIN GLARGINE [Concomitant]
     Active Substance: INSULIN GLARGINE
     Indication: HYPERGLYCAEMIA
     Dosage: 26 (UNITS UNSPECIFIED)
     Route: 065
     Dates: start: 200906, end: 20130324
  18. HEMOVAS [Concomitant]
     Indication: ADVERSE EVENT
     Route: 048
     Dates: start: 20150226
  19. INSULIN GLARGINE [Concomitant]
     Active Substance: INSULIN GLARGINE
     Indication: HYPERGLYCAEMIA
     Dosage: 32 (UNITS UNSPECIFIED)
     Route: 065
     Dates: start: 20140319, end: 20140323
  20. INSULIN GLARGINE [Concomitant]
     Active Substance: INSULIN GLARGINE
     Indication: HYPERGLYCAEMIA
     Dosage: 24 (UNITS UNSPECIFIED)
     Route: 065
     Dates: start: 20140102, end: 20140301
  21. INSULIN GLARGINE [Concomitant]
     Active Substance: INSULIN GLARGINE
     Indication: HYPERGLYCAEMIA
     Dosage: 24 (UNITS UNSPECIFIED)
     Route: 065
     Dates: start: 20151216
  22. BROMAZEPAM [Concomitant]
     Active Substance: BROMAZEPAM
     Indication: ANXIETY
     Route: 048
     Dates: start: 1994
  23. IVABRADINE [Concomitant]
     Active Substance: IVABRADINE
     Indication: CARDIAC DISORDER
     Route: 048
     Dates: start: 20110204, end: 20110307
  24. OMEPRAZOLE. [Concomitant]
     Active Substance: OMEPRAZOLE
     Indication: ADVERSE EVENT
     Route: 048
     Dates: start: 20130130
  25. AMOXICILLIN. [Concomitant]
     Active Substance: AMOXICILLIN
     Indication: ADVERSE EVENT
     Route: 048
     Dates: start: 20130308
  26. FENTANYL. [Concomitant]
     Active Substance: FENTANYL
     Indication: ADVERSE EVENT
     Route: 061
     Dates: start: 20150606
  27. PARACETAMOL [Concomitant]
     Active Substance: ACETAMINOPHEN
     Indication: INTERMITTENT CLAUDICATION
     Route: 048
     Dates: start: 20110526
  28. PARACETAMOL [Concomitant]
     Active Substance: ACETAMINOPHEN
     Indication: INTERMITTENT CLAUDICATION
     Route: 048
     Dates: start: 20130311
  29. IVABRADINE [Concomitant]
     Active Substance: IVABRADINE
     Indication: CARDIAC DISORDER
     Route: 048
     Dates: start: 20110307
  30. ENALAPRIL [Concomitant]
     Active Substance: ENALAPRIL
     Indication: HYPERTENSION
     Route: 048
     Dates: start: 201006, end: 20120520
  31. CLAVULANIC ACID [Concomitant]
     Active Substance: CLAVULANIC ACID
     Indication: ADVERSE EVENT
     Route: 048
     Dates: start: 20130308
  32. CANAGLIFLOZIN [Suspect]
     Active Substance: CANAGLIFLOZIN
     Indication: TYPE 2 DIABETES MELLITUS
     Dosage: 100 OR 300 MG
     Route: 048
     Dates: start: 20101223
  33. PARACETAMOL [Concomitant]
     Active Substance: ACETAMINOPHEN
     Indication: INTERMITTENT CLAUDICATION
     Route: 048
     Dates: start: 20150606
  34. GERMISDIN [Concomitant]
     Indication: ADVERSE EVENT
     Route: 061
     Dates: start: 20130409
  35. INSULIN GLARGINE [Concomitant]
     Active Substance: INSULIN GLARGINE
     Indication: HYPERGLYCAEMIA
     Dosage: 30 (UNITS UNSPECIFIED)
     Route: 065
     Dates: start: 20140323, end: 20140327
  36. INSULIN GLARGINE [Concomitant]
     Active Substance: INSULIN GLARGINE
     Indication: HYPERGLYCAEMIA
     Dosage: 26 (UNITS UNSPECIFIED)
     Route: 065
     Dates: start: 20140327, end: 20140403
  37. SIMVASTATIN. [Concomitant]
     Active Substance: SIMVASTATIN
     Indication: DYSLIPIDAEMIA
     Route: 048
     Dates: start: 2008
  38. PARACETAMOL [Concomitant]
     Active Substance: ACETAMINOPHEN
     Indication: ADVERSE EVENT
     Route: 048
     Dates: start: 20110526
  39. TROXERUTINA [Concomitant]
     Indication: INTERMITTENT CLAUDICATION
     Route: 048
     Dates: start: 20110526
  40. ENALAPRIL [Concomitant]
     Active Substance: ENALAPRIL
     Indication: HYPERTENSION
     Route: 048
     Dates: start: 20120619
  41. METAMIZOLE [Concomitant]
     Active Substance: METAMIZOLE
     Indication: ADVERSE EVENT
     Route: 048
     Dates: start: 20150606
  42. INSULIN GLARGINE [Concomitant]
     Active Substance: INSULIN GLARGINE
     Indication: HYPERGLYCAEMIA
     Dosage: 24 (UNITS UNSPECIFIED)
     Route: 065
     Dates: start: 20150203, end: 20150701
  43. INSULIN GLARGINE [Concomitant]
     Active Substance: INSULIN GLARGINE
     Indication: HYPERGLYCAEMIA
     Dosage: 30 (UNITS UNSPECIFIED)
     Route: 065
     Dates: start: 20140301, end: 20140319

REACTIONS (2)
  - Peripheral ischaemia [Recovering/Resolving]
  - Amputation [Recovering/Resolving]

NARRATIVE: CASE EVENT DATE: 20160331
